FAERS Safety Report 11457892 (Version 1)
Quarter: 2015Q3

REPORT INFORMATION
  Report Type: Spontaneous
  Country: DE (occurrence: DE)
  Receive Date: 20150904
  Receipt Date: 20150904
  Transmission Date: 20151125
  Serious: Yes (Hospitalization)
  Sender: FDA-Public Use
  Company Number: GXKR2015DE003727

PATIENT
  Age: 49 Year
  Sex: Male
  Weight: 107 kg

DRUGS (4)
  1. CIPRO 1A PHARMA [Suspect]
     Active Substance: CIPROFLOXACIN\CIPROFLOXACIN HYDROCHLORIDE
     Indication: EPIDIDYMITIS
     Dosage: 500 MG, BID
     Route: 048
     Dates: start: 2012
  2. CIPRO 1A PHARMA [Suspect]
     Active Substance: CIPROFLOXACIN\CIPROFLOXACIN HYDROCHLORIDE
     Dosage: 500 MG, BID
     Route: 048
  3. CIPRO 1A PHARMA [Suspect]
     Active Substance: CIPROFLOXACIN\CIPROFLOXACIN HYDROCHLORIDE
     Dosage: 500 MG, BID
  4. CIPRO 1A PHARMA [Suspect]
     Active Substance: CIPROFLOXACIN\CIPROFLOXACIN HYDROCHLORIDE
     Dosage: 500 MG, BID
     Route: 048

REACTIONS (8)
  - Anxiety [Unknown]
  - Panic attack [Unknown]
  - Muscle spasms [Unknown]
  - Weight decreased [Unknown]
  - Tendon pain [Unknown]
  - Chills [Unknown]
  - Sciatica [Unknown]
  - Malaise [Unknown]
